FAERS Safety Report 18601795 (Version 1)
Quarter: 2020Q4

REPORT INFORMATION
  Report Type: Spontaneous
  Country: CN (occurrence: CN)
  Receive Date: 20201210
  Receipt Date: 20201210
  Transmission Date: 20210114
  Serious: Yes (Life-Threatening)
  Sender: FDA-Public Use
  Company Number: CN-BAYER-2020-265672

PATIENT
  Age: 80 Year
  Sex: Male
  Weight: 60 kg

DRUGS (1)
  1. NEXAVAR [Suspect]
     Active Substance: SORAFENIB
     Indication: HEPATIC CANCER
     Dosage: 0.2 G, BID
     Route: 048
     Dates: start: 20201018, end: 20201110

REACTIONS (2)
  - Thrombocytopenia [Recovering/Resolving]
  - Off label use [None]

NARRATIVE: CASE EVENT DATE: 20201018
